FAERS Safety Report 9687342 (Version 1)
Quarter: 2013Q4

REPORT INFORMATION
  Report Type: Spontaneous
  Country: US (occurrence: US)
  Receive Date: 20131114
  Receipt Date: 20131114
  Transmission Date: 20140711
  Serious: Yes (Hospitalization)
  Sender: FDA-Public Use
  Company Number: US-BIOGENIDEC-2013BI108306

PATIENT
  Age: 68 Year
  Sex: Female

DRUGS (10)
  1. AVONEX [Suspect]
     Indication: MULTIPLE SCLEROSIS
     Route: 030
     Dates: start: 20120313
  2. BUSPIRONE HCL [Concomitant]
  3. COLCHICINE [Concomitant]
  4. GLYBURIDE [Concomitant]
  5. JANUVIA [Concomitant]
  6. KEFLEX [Concomitant]
  7. LASIX [Concomitant]
  8. LEVOTHYROXINE SODIUM [Concomitant]
  9. OMEPRAZOLE [Concomitant]
  10. OXYBUTYNIN CHLORIDE [Concomitant]

REACTIONS (2)
  - Pneumonia [Unknown]
  - Muscle atrophy [Unknown]
